FAERS Safety Report 7558585-2 (Version None)
Quarter: 2011Q2

REPORT INFORMATION
  Report Type: 
  Country: None (occurrence: None)
  Receive Date: 20110621
  Receipt Date: 20110610
  Transmission Date: 20111010
  Serious: Yes (Hospitalization)
  Sender: FDA-Public Use
  Company Number: US-BIOGENIDEC-2011BI021626

PATIENT
  Age: 60 Year
  Sex: Male

DRUGS (1)
  1. TYSABRI [Suspect]
     Indication: MULTIPLE SCLEROSIS
     Route: 042
     Dates: start: 20110401, end: 20110519

REACTIONS (9)
  - PNEUMONIA [None]
  - CONVULSION [None]
  - COORDINATION ABNORMAL [None]
  - PNEUMOTHORAX [None]
  - LOSS OF CONSCIOUSNESS [None]
  - FALL [None]
  - FAECAL INCONTINENCE [None]
  - PYREXIA [None]
  - RENAL FAILURE [None]
